FAERS Safety Report 9593087 (Version 1)
Quarter: 2013Q4

REPORT INFORMATION
  Report Type: Spontaneous
  Country: US (occurrence: US)
  Receive Date: 20131004
  Receipt Date: 20131004
  Transmission Date: 20140711
  Serious: Yes (Other)
  Sender: FDA-Public Use
  Company Number: US-MERCK-1310USA001621

PATIENT
  Age: 74 Year
  Sex: Female
  Weight: 55.8 kg

DRUGS (15)
  1. ZOCOR [Suspect]
     Indication: BLOOD CHOLESTEROL INCREASED
     Dosage: 40 MG, QD
     Route: 048
  2. IBUPROFEN [Interacting]
     Indication: BONE PAIN
  3. LYRICA [Suspect]
     Indication: OSTEOPOROSIS
     Dosage: 50 MG, QD
     Dates: start: 20130912
  4. LYRICA [Suspect]
     Indication: INTERVERTEBRAL DISC DEGENERATION
  5. LYRICA [Suspect]
     Indication: SPINAL COLUMN STENOSIS
  6. OMEPRAZOLE [Interacting]
     Indication: ABDOMINAL DISCOMFORT
     Dosage: 40 MG, QD
  7. OMEPRAZOLE [Interacting]
     Indication: GASTROOESOPHAGEAL REFLUX DISEASE
  8. INDERAL [Interacting]
     Indication: MITRAL VALVE PROLAPSE
     Dosage: 20 MG, BID
  9. PROBIOTICA [Interacting]
     Indication: CONSTIPATION
  10. PROBIOTICA [Interacting]
     Indication: DYSPEPSIA
  11. BUDESONIDE [Interacting]
     Indication: EMPHYSEMA
  12. TORADOL [Interacting]
     Indication: BONE PAIN
  13. VICODIN [Interacting]
     Indication: BONE PAIN
  14. CHOLECALCIFEROL [Interacting]
     Indication: OSTEOPOROSIS
     Dosage: 2000 IU DAILY
  15. ALBUTEROL [Interacting]
     Indication: EMPHYSEMA
     Dosage: UNK UNK, QID

REACTIONS (3)
  - Drug interaction [Unknown]
  - Respiratory tract congestion [Not Recovered/Not Resolved]
  - Dyspnoea [Not Recovered/Not Resolved]
